FAERS Safety Report 6702345-9 (Version None)
Quarter: 2010Q2

REPORT INFORMATION
  Report Type: 
  Country: None (occurrence: None)
  Receive Date: 20100429
  Receipt Date: 20100426
  Transmission Date: 20101027
  Serious: Yes (Death, Life-Threatening)
  Sender: FDA-Public Use
  Company Number: CH-ASTRAZENECA-2010SE18978

PATIENT
  Age: 17 Year
  Sex: Male

DRUGS (3)
  1. SEROQUEL XR [Suspect]
     Route: 048
     Dates: end: 20091223
  2. VALIUM [Suspect]
     Route: 048
     Dates: end: 20091223
  3. VALPROATE SODIUM [Suspect]
     Route: 048
     Dates: end: 20091223

REACTIONS (2)
  - BRAIN OEDEMA [None]
  - LOSS OF CONSCIOUSNESS [None]
